FAERS Safety Report 8803735 (Version 5)
Quarter: 2013Q2

REPORT INFORMATION
  Report Type: Spontaneous
  Country: US (occurrence: US)
  Receive Date: 20120924
  Receipt Date: 20130509
  Transmission Date: 20140414
  Serious: Yes (Other)
  Sender: FDA-Public Use
  Company Number: US-JNJFOC-20120802675

PATIENT
  Sex: Female

DRUGS (6)
  1. TOPAMAX [Suspect]
     Indication: EPILEPSY
     Route: 048
  2. TOPAMAX [Suspect]
     Indication: EPILEPSY
     Route: 048
     Dates: start: 201103, end: 201106
  3. NITROFURANTOIN MACRO [Suspect]
     Indication: CYSTITIS
     Route: 048
  4. LAMOTRIGINE [Suspect]
     Indication: CONVULSION
     Route: 048
  5. FOLIC ACID [Concomitant]
     Indication: NUTRITIONAL SUPPLEMENTATION
     Route: 048
  6. ALL OTHER THERAPEUTICS [Concomitant]
     Indication: VITAMIN SUPPLEMENTATION
     Route: 048

REACTIONS (2)
  - Premature delivery [Recovered/Resolved]
  - Exposure during pregnancy [Recovered/Resolved]
